FAERS Safety Report 19065111 (Version 1)
Quarter: 2021Q1

REPORT INFORMATION
  Report Type: Spontaneous
  Country: US (occurrence: US)
  Receive Date: 20210327
  Receipt Date: 20210327
  Transmission Date: 20210420
  Serious: Yes (Other)
  Sender: FDA-Public Use
  Company Number: US-ABBVIE-21K-163-3834874-00

PATIENT

DRUGS (2)
  1. IMBRUVICA [Suspect]
     Active Substance: IBRUTINIB
     Indication: CHRONIC LYMPHOCYTIC LEUKAEMIA
     Route: 048
  2. IMBRUVICA [Suspect]
     Active Substance: IBRUTINIB
     Dosage: DOSE REDUCED
     Route: 048

REACTIONS (5)
  - CD4 lymphocytes decreased [Unknown]
  - Neutropenia [Unknown]
  - Basal cell carcinoma [Unknown]
  - Toxicity to various agents [Unknown]
  - Thrombocytopenia [Unknown]
